FAERS Safety Report 4844255-8 (Version None)
Quarter: 2005Q4

REPORT INFORMATION
  Report Type: 
  Country: None (occurrence: None)
  Receive Date: 20051202
  Receipt Date: 20050929
  Transmission Date: 20060501
  Serious: Yes (Hospitalization)
  Sender: FDA-Public Use
  Company Number: US-MERCK-0510USA00397

PATIENT
  Age: 62 Year
  Sex: Male
  Weight: 59 kg

DRUGS (1)
  1. VIOXX [Suspect]
     Route: 048
     Dates: start: 20010717, end: 20040424

REACTIONS (1)
  - ISCHAEMIC STROKE [None]
